FAERS Safety Report 14425766 (Version 1)
Quarter: 2018Q1

REPORT INFORMATION
  Report Type: Spontaneous
  Country: US (occurrence: US)
  Receive Date: 20180122
  Receipt Date: 20180122
  Transmission Date: 20180509
  Serious: Yes (Disabling, Other)
  Sender: FDA-Public Use
  Company Number: None

PATIENT
  Age: 60 Year
  Sex: Female
  Weight: 56.25 kg

DRUGS (5)
  1. OXYCODONE [Concomitant]
     Active Substance: OXYCODONE
  2. OMAPRAZOLE [Concomitant]
  3. JUBLIA [Suspect]
     Active Substance: EFINACONAZOLE
     Indication: ONYCHOLYSIS
     Dosage: QUANTITY:1 DROP(S); AT BEDTIME?
     Route: 061
     Dates: start: 20170201, end: 20170201
  4. DIAZEPAM. [Concomitant]
     Active Substance: DIAZEPAM
  5. VITAMIN [Concomitant]
     Active Substance: VITAMINS

REACTIONS (3)
  - Pain [None]
  - Adverse event [None]
  - Economic problem [None]

NARRATIVE: CASE EVENT DATE: 20170202
